FAERS Safety Report 13459251 (Version 1)
Quarter: 2017Q2

REPORT INFORMATION
  Report Type: Spontaneous
  Country: US (occurrence: US)
  Receive Date: 20170419
  Receipt Date: 20170419
  Transmission Date: 20170830
  Serious: Yes (Other)
  Sender: FDA-Public Use
  Company Number: US-TEVA-760854USA

PATIENT
  Sex: Male

DRUGS (5)
  1. VFEND [Suspect]
     Active Substance: VORICONAZOLE
     Indication: BONE MARROW TRANSPLANT
     Route: 065
     Dates: start: 20170923
  2. LEVOTHYROXINE. [Suspect]
     Active Substance: LEVOTHYROXINE
     Route: 065
     Dates: start: 20120118
  3. PREDNISONE. [Suspect]
     Active Substance: PREDNISONE
     Indication: BONE MARROW TRANSPLANT
     Dosage: 5 MILLIGRAM DAILY;
     Route: 065
     Dates: start: 20170113
  4. SODIUM BICARBONATE. [Suspect]
     Active Substance: SODIUM BICARBONATE
     Indication: BONE MARROW TRANSPLANT
     Route: 065
     Dates: start: 20170213
  5. ACICLOVIR [Suspect]
     Active Substance: ACYCLOVIR
     Indication: BONE MARROW TRANSPLANT
     Route: 065
     Dates: start: 20120118

REACTIONS (2)
  - Staphylococcal infection [Recovered/Resolved]
  - Pleural effusion [Recovered/Resolved]
